FAERS Safety Report 5339037-7 (Version None)
Quarter: 2007Q2

REPORT INFORMATION
  Report Type: 
  Country: None (occurrence: None)
  Receive Date: 20070402
  Receipt Date: 20061113
  Transmission Date: 20071010
  Serious: Yes (Other)
  Sender: FDA-Public Use
  Company Number: 2006BL006383

PATIENT
  Age: 60 Year
  Sex: Female

DRUGS (1)
  1. ALREX [Suspect]
     Indication: DRY EYE
     Dosage: 2 DROP;TWICE A DAY; OPHTHALMIC
     Route: 047
     Dates: start: 20031001, end: 20040901

REACTIONS (2)
  - GLAUCOMA [None]
  - VISUAL FIELD DEFECT [None]
